FAERS Safety Report 15889631 (Version 1)
Quarter: 2019Q1

REPORT INFORMATION
  Report Type: Spontaneous
  Country: IT (occurrence: IT)
  Receive Date: 20190130
  Receipt Date: 20190130
  Transmission Date: 20190417
  Serious: Yes (Hospitalization)
  Sender: FDA-Public Use
  Company Number: IT-ASTRAZENECA-2019SE15248

PATIENT
  Age: 86 Year
  Sex: Female

DRUGS (1)
  1. QUETIAPINE. [Suspect]
     Active Substance: QUETIAPINE
     Indication: CONFUSIONAL STATE
     Route: 048
     Dates: start: 20181201, end: 20190102

REACTIONS (3)
  - Hyperamylasaemia [Recovered/Resolved]
  - Respiratory failure [Recovered/Resolved]
  - Coma [Recovered/Resolved]

NARRATIVE: CASE EVENT DATE: 20190102
